FAERS Safety Report 24884182 (Version 11)
Quarter: 2025Q2

REPORT INFORMATION
  Report Type: Spontaneous
  Country: US (occurrence: US)
  Receive Date: 20250124
  Receipt Date: 20250621
  Transmission Date: 20250716
  Serious: Yes (Hospitalization, Other)
  Sender: RECORDATI
  Company Number: US-ORPHANEU-2024010201

PATIENT
  Age: 67 Year
  Sex: Female
  Weight: 65.76 kg

DRUGS (17)
  1. ISTURISA [Suspect]
     Active Substance: OSILODROSTAT PHOSPHATE
     Indication: Cushing^s syndrome
     Dosage: 1 MG, BID
     Route: 065
     Dates: start: 20241220
  2. ISTURISA [Suspect]
     Active Substance: OSILODROSTAT PHOSPHATE
     Indication: Hyperadrenocorticism
     Dosage: 2 MILLIGRAM, BID
     Route: 048
     Dates: end: 20250212
  3. ISTURISA [Suspect]
     Active Substance: OSILODROSTAT PHOSPHATE
     Dosage: 0.5 MILLIGRAM, BID
     Route: 048
     Dates: start: 202502, end: 20250225
  4. ISTURISA [Suspect]
     Active Substance: OSILODROSTAT PHOSPHATE
     Route: 048
     Dates: start: 2025, end: 2025
  5. ISTURISA [Suspect]
     Active Substance: OSILODROSTAT PHOSPHATE
     Dosage: 1.5 MG/DAY, BID (1MG IN AM AND 0.5 MG IN PM)
     Route: 048
     Dates: start: 202502, end: 2025
  6. ISTURISA [Suspect]
     Active Substance: OSILODROSTAT PHOSPHATE
     Dosage: 1.5 MILLIGRAM, BID (0.5 AT QHS)
     Route: 048
     Dates: start: 2025, end: 20250519
  7. ISTURISA [Suspect]
     Active Substance: OSILODROSTAT PHOSPHATE
     Dosage: 1 MG, BID (0.5 QHS DOSE INCREASED TO 1 MG TABLET QHS)
     Route: 048
     Dates: start: 20250520
  8. ISTURISA [Suspect]
     Active Substance: OSILODROSTAT PHOSPHATE
     Dosage: 1 MG, BID
     Route: 048
  9. AMLODIPINE BESYLATE [Concomitant]
     Active Substance: AMLODIPINE BESYLATE
     Indication: Product used for unknown indication
     Dosage: 2.5 MILLIGRAM, QD (TABLET)
     Route: 048
     Dates: start: 20241018, end: 20250416
  10. BUSPIRONE HCL [Concomitant]
     Active Substance: BUSPIRONE HYDROCHLORIDE
     Indication: Product used for unknown indication
     Dosage: 5 MILLIGRAM, BID (TABLET)
     Route: 048
     Dates: start: 20240419
  11. CALCIUM\VITAMIN D [Concomitant]
     Active Substance: CALCIUM\VITAMIN D
     Indication: Product used for unknown indication
     Dosage: 500-5 MG, QD (TABLET)
     Route: 048
     Dates: start: 20221218
  12. HYDROXYZINE HYDROCHLORIDE [Concomitant]
     Active Substance: HYDROXYZINE HYDROCHLORIDE
     Indication: Product used for unknown indication
     Dosage: 50 MILLIGRAM, QD (TABLET)
     Route: 048
     Dates: start: 20240419
  13. INTRAROSA [Concomitant]
     Active Substance: PRASTERONE
     Indication: Product used for unknown indication
     Dosage: 6.5 MILLIGRAM, QD (VAGINAL INSERT)
     Route: 067
     Dates: start: 20240419
  14. LEVOTHYROXINE SODIUM [Concomitant]
     Active Substance: LEVOTHYROXINE SODIUM
     Indication: Product used for unknown indication
     Dosage: 75 MICROGRAM, QD (TABLET)
     Route: 048
     Dates: start: 20240419
  15. METOPROLOL SUCCINATE [Concomitant]
     Active Substance: METOPROLOL SUCCINATE
     Indication: Product used for unknown indication
     Dosage: 25 MILLIGRAM, QD (TABLET ER)
     Route: 048
     Dates: start: 20240419
  16. SPIRONOLACTONE [Concomitant]
     Active Substance: SPIRONOLACTONE
     Indication: Product used for unknown indication
     Dosage: 25 MILLIGRAM, QD (TABLET)
     Route: 048
     Dates: start: 20241202, end: 202504
  17. SPIRONOLACTONE [Concomitant]
     Active Substance: SPIRONOLACTONE
     Dosage: 12.5 MILLIGRAM, QD (TABLET 25 MG)
     Route: 048
     Dates: start: 20250416

REACTIONS (28)
  - Blood potassium increased [Not Recovered/Not Resolved]
  - Colitis [Not Recovered/Not Resolved]
  - Hyponatraemia [Not Recovered/Not Resolved]
  - Malaise [Unknown]
  - Nervousness [Unknown]
  - Pain in extremity [Unknown]
  - Blood urea increased [Unknown]
  - Blood phosphorus increased [Unknown]
  - Weight increased [Not Recovered/Not Resolved]
  - Feeling abnormal [Unknown]
  - Constipation [Not Recovered/Not Resolved]
  - Pelvic pain [Recovered/Resolved]
  - Thyroid hormones decreased [Unknown]
  - Heart rate decreased [Unknown]
  - Feeling cold [Unknown]
  - Nocturia [Not Recovered/Not Resolved]
  - Rhinorrhoea [Not Recovered/Not Resolved]
  - Cough [Recovered/Resolved]
  - Cough [Not Recovered/Not Resolved]
  - Dyspepsia [Not Recovered/Not Resolved]
  - Back pain [Not Recovered/Not Resolved]
  - Dizziness [Unknown]
  - Fatigue [Recovered/Resolved]
  - Nausea [Not Recovered/Not Resolved]
  - Headache [Not Recovered/Not Resolved]
  - Fatigue [Not Recovered/Not Resolved]
  - Wrong technique in product usage process [Recovered/Resolved]
  - Therapeutic product effect variable [Recovered/Resolved]

NARRATIVE: CASE EVENT DATE: 20241201
